FAERS Safety Report 9264844 (Version 4)
Quarter: 2013Q4

REPORT INFORMATION
  Report Type: Spontaneous
  Country: US (occurrence: None)
  Receive Date: 20130426
  Receipt Date: 20131125
  Transmission Date: 20140711
  Serious: Yes (Hospitalization, Other)
  Sender: FDA-Public Use
  Company Number: JPI-P-031258

PATIENT
  Age: 52 Year
  Sex: Male

DRUGS (2)
  1. XYREM [Suspect]
     Indication: INSOMNIA
     Dosage: 6 GM (3 GM,2 IN 1 D)
     Route: 048
     Dates: start: 20110824
  2. OXYCODONE [Suspect]
     Indication: PROCEDURAL PAIN
     Dates: start: 2013

REACTIONS (27)
  - Hypoaesthesia [None]
  - Insomnia [None]
  - Depression [None]
  - Stress [None]
  - Faecal incontinence [None]
  - Condition aggravated [None]
  - Road traffic accident [None]
  - Therapy cessation [None]
  - Incorrect dose administered [None]
  - Diarrhoea [None]
  - Pain [None]
  - Somnolence [None]
  - Spinal fracture [None]
  - Drug ineffective [None]
  - Spinal cord injury cervical [None]
  - Spinal fusion surgery [None]
  - Thoracic vertebral fracture [None]
  - Limb crushing injury [None]
  - Herpes zoster [None]
  - Rotator cuff syndrome [None]
  - Onychomadesis [None]
  - Cataract [None]
  - Chills [None]
  - Limb discomfort [None]
  - Muscular weakness [None]
  - Anxiety [None]
  - Amnesia [None]
